FAERS Safety Report 6387483-5 (Version None)
Quarter: 2009Q4

REPORT INFORMATION
  Report Type: 
  Country: None (occurrence: None)
  Receive Date: 20091005
  Receipt Date: 20090924
  Transmission Date: 20100525
  Serious: Yes (Hospitalization)
  Sender: FDA-Public Use
  Company Number: US-BIOGENIDEC-2009BI015428

PATIENT
  Age: 58 Year
  Sex: Female
  Weight: 55 kg

DRUGS (1)
  1. AVONEX [Suspect]
     Indication: MULTIPLE SCLEROSIS
     Route: 030
     Dates: start: 20040305

REACTIONS (6)
  - ABASIA [None]
  - DECREASED IMMUNE RESPONSIVENESS [None]
  - DYSPNOEA [None]
  - FAECAL INCONTINENCE [None]
  - HAEMOGLOBIN DECREASED [None]
  - PNEUMONIA [None]
